FAERS Safety Report 17104860 (Version 3)
Quarter: 2020Q3

REPORT INFORMATION
  Report Type: Spontaneous
  Country: CO (occurrence: CO)
  Receive Date: 20191203
  Receipt Date: 20200814
  Transmission Date: 20201102
  Serious: Yes (Hospitalization)
  Sender: FDA-Public Use
  Company Number: CO-EMD SERONO-9131676

PATIENT
  Age: 74 Year
  Sex: Female
  Weight: 61 kg

DRUGS (12)
  1. LOSARTAN. [Suspect]
     Active Substance: LOSARTAN
     Indication: PRODUCT USED FOR UNKNOWN INDICATION
  2. SANDOSTATIN [Suspect]
     Active Substance: OCTREOTIDE ACETATE
     Indication: PANCREATIC NEUROENDOCRINE TUMOUR
  3. FERROUS SULFATE. [Concomitant]
     Active Substance: FERROUS SULFATE
     Indication: PRODUCT USED FOR UNKNOWN INDICATION
  4. ATORVASTATIN [Suspect]
     Active Substance: ATORVASTATIN
     Indication: PRODUCT USED FOR UNKNOWN INDICATION
  5. METFORMIN HYDROCHLORIDE. [Suspect]
     Active Substance: METFORMIN HYDROCHLORIDE
     Indication: PRODUCT USED FOR UNKNOWN INDICATION
  6. SANDOSTATIN [Suspect]
     Active Substance: OCTREOTIDE ACETATE
     Dosage: SANDOSTATIN LAR VIAL ADAPTOR (OCTREOTIDE WITH POLY(D L?LACTIDE?CO?GLYCOLIDE)) INJECTION
  7. HYDROCHLOROTHIAZIDE. [Concomitant]
     Active Substance: HYDROCHLOROTHIAZIDE
     Indication: PRODUCT USED FOR UNKNOWN INDICATION
  8. AMLODIPINE [Concomitant]
     Active Substance: AMLODIPINE BESYLATE
     Indication: PRODUCT USED FOR UNKNOWN INDICATION
  9. AFINITOR [Suspect]
     Active Substance: EVEROLIMUS
     Indication: PANCREATIC NEUROENDOCRINE TUMOUR
     Route: 048
     Dates: start: 20170627
  10. FOLIC ACID. [Concomitant]
     Active Substance: FOLIC ACID
     Indication: PRODUCT USED FOR UNKNOWN INDICATION
  11. SANDOSTATIN [Suspect]
     Active Substance: OCTREOTIDE ACETATE
     Indication: PANCREATIC NEUROENDOCRINE TUMOUR
     Route: 030
     Dates: start: 19960322
  12. SANDOSTATIN [Suspect]
     Active Substance: OCTREOTIDE ACETATE
     Dosage: SANDOSTATIN LAR READYFILL SYRINGE (OCTREOTIDE WITH POLY POLY(DL?LACTIDE?CO?GLYCOLIDE))

REACTIONS (42)
  - Burning sensation [Unknown]
  - Salivary hypersecretion [Unknown]
  - Fatigue [Unknown]
  - Drug intolerance [Unknown]
  - Loss of personal independence in daily activities [Unknown]
  - Blood glucose increased [Unknown]
  - Madarosis [Unknown]
  - Pain [Unknown]
  - Weight decreased [Unknown]
  - Eating disorder [Unknown]
  - Choking sensation [Unknown]
  - Musculoskeletal stiffness [Unknown]
  - Joint injury [Unknown]
  - Musculoskeletal discomfort [Unknown]
  - Arthralgia [Unknown]
  - Mobility decreased [Unknown]
  - Onychomadesis [Unknown]
  - Dizziness [Unknown]
  - Tooth disorder [Unknown]
  - Feeling cold [Unknown]
  - Spleen disorder [Unknown]
  - Inflammation [Recovered/Resolved]
  - Lip dry [Unknown]
  - Blood cholesterol increased [Unknown]
  - Mouth injury [Unknown]
  - Vulvovaginal pruritus [Unknown]
  - Ear discomfort [Unknown]
  - Dry skin [Unknown]
  - Skin burning sensation [Unknown]
  - Pruritus [Unknown]
  - Yellow skin [Unknown]
  - Pain in extremity [Unknown]
  - Tendon discomfort [Unknown]
  - Fall [Unknown]
  - Vulvovaginal burning sensation [Unknown]
  - Saliva altered [Unknown]
  - Chest pain [Unknown]
  - Ocular discomfort [Unknown]
  - Hypoaesthesia [Unknown]
  - Headache [Unknown]
  - Dysstasia [Unknown]
  - Abdominal pain upper [Unknown]

NARRATIVE: CASE EVENT DATE: 20170719
